FAERS Safety Report 10921198 (Version 2)
Quarter: 2015Q2

REPORT INFORMATION
  Report Type: Spontaneous
  Country: US (occurrence: US)
  Receive Date: 20150317
  Receipt Date: 20150611
  Transmission Date: 20150821
  Serious: No
  Sender: FDA-Public Use
  Company Number: US-PFIZER INC-2015092277

PATIENT
  Age: 76 Year
  Sex: Female
  Weight: 63 kg

DRUGS (2)
  1. SUTENT [Suspect]
     Active Substance: SUNITINIB MALATE
     Indication: GASTROINTESTINAL STROMAL TUMOUR
     Dosage: 25 MG, PER DAY FOR 7 DAYS THEN OFF OF THE NEXT 7 DAYS
     Dates: start: 201312, end: 201502
  2. SUTENT [Suspect]
     Active Substance: SUNITINIB MALATE
     Dosage: 25 MG, CYCLIC (1X/DAY ON 7 DAYS, OFF 7 DAYS)
     Route: 048
     Dates: start: 20150311

REACTIONS (1)
  - Body height decreased [Recovered/Resolved]
